FAERS Safety Report 9709954 (Version 1)
Quarter: 2013Q4

REPORT INFORMATION
  Report Type: Spontaneous
  Country: GB (occurrence: GB)
  Receive Date: 20131126
  Receipt Date: 20131126
  Transmission Date: 20140711
  Serious: Yes (Hospitalization)
  Sender: FDA-Public Use
  Company Number: GB-JNJFOC-20131111712

PATIENT
  Age: 81 Year
  Sex: Male
  Weight: 78 kg

DRUGS (4)
  1. XARELTO [Suspect]
     Indication: ATRIAL FIBRILLATION
     Route: 048
     Dates: start: 20120819
  2. ALENDRONIC ACID [Concomitant]
     Route: 065
  3. BISOPROLOL [Concomitant]
     Route: 065
  4. ADCAL-D3 [Concomitant]
     Route: 065

REACTIONS (3)
  - Haemorrhage [Recovering/Resolving]
  - Haematemesis [Unknown]
  - Faeces discoloured [Unknown]
